FAERS Safety Report 6822465-8 (Version None)
Quarter: 2010Q3

REPORT INFORMATION
  Report Type: 
  Country: None (occurrence: None)
  Receive Date: 20100706
  Receipt Date: 20100614
  Transmission Date: 20110219
  Serious: Yes (Death, Hospitalization)
  Sender: FDA-Public Use
  Company Number: 2010060066

PATIENT
  Age: 70 Year
  Sex: Female

DRUGS (6)
  1. ONSOLIS [Suspect]
     Indication: CANCER PAIN
     Dosage: (200 MCG, Q 6 HOURS, AS NEEDED), BU
     Route: 002
     Dates: start: 20100503
  2. LORTAB [Concomitant]
  3. DURAGESIC-100 [Concomitant]
  4. MAGIC MOUTH WASH (LIDOCAINE, ALUMINUM HYDROXIDE, MAGNESIUM HYDROXIDE, [Concomitant]
  5. LORCET (HYDROCODONE, ACETAMINOPHYEN) [Concomitant]
  6. OXYCONTIN [Concomitant]

REACTIONS (1)
  - DYSPNOEA [None]
